FAERS Safety Report 10337777 (Version 2)
Quarter: 2014Q3

REPORT INFORMATION
  Report Type: Report from Study
  Country: CO (occurrence: CO)
  Receive Date: 20140724
  Receipt Date: 20140724
  Transmission Date: 20150326
  Serious: Yes (Death, Hospitalization)
  Sender: FDA-Public Use
  Company Number: CO-BRISTOL-MYERS SQUIBB COMPANY-20878450

PATIENT
  Age: 34 Year
  Sex: Female

DRUGS (2)
  1. IXEMPRA [Suspect]
     Active Substance: IXABEPILONE
     Indication: BREAST CANCER METASTATIC
     Dosage: 4TH CYCLE INFUSED ON 20MAY?LAST DOSE:02JUL14
     Route: 042
     Dates: start: 20140304
  2. CAPECITABINE [Suspect]
     Active Substance: CAPECITABINE
     Indication: BREAST CANCER METASTATIC
     Dosage: 4TH CYCLE INFUSED ON 20MAY
     Dates: start: 20140304

REACTIONS (3)
  - Back pain [Unknown]
  - Vomiting [Unknown]
  - Pain [Fatal]

NARRATIVE: CASE EVENT DATE: 20140524
